FAERS Safety Report 8935388 (Version 1)
Quarter: 2012Q4

REPORT INFORMATION
  Report Type: Spontaneous
  Country: US (occurrence: None)
  Receive Date: 20121127
  Receipt Date: 20121127
  Transmission Date: 20130627
  Serious: Yes (Hospitalization)
  Sender: FDA-Public Use
  Company Number: None

PATIENT
  Age: 61 Year
  Sex: Male

DRUGS (1)
  1. STELARA PFS 45 MG/0.5 ML JANSSEN [Suspect]
     Indication: PSORIASIS
     Route: 058
     Dates: start: 20100729, end: 20121106

REACTIONS (2)
  - Pneumonia [None]
  - Immune system disorder [None]
